FAERS Safety Report 5286019-X (Version None)
Quarter: 2007Q1

REPORT INFORMATION
  Report Type: 
  Country: None (occurrence: None)
  Receive Date: 20070329
  Receipt Date: 20070316
  Transmission Date: 20070707
  Serious: Yes (Death, Hospitalization)
  Sender: FDA-Public Use
  Company Number: AZAUS200700104

PATIENT
  Age: 79 Year
  Sex: Male
  Weight: 82.1 kg

DRUGS (6)
  1. VIDAZA [Suspect]
     Indication: MYELODYSPLASTIC SYNDROME
     Dosage: 75 MG/M2 (DAILY X 5 DAYS), INTRAVENOUS
     Route: 042
     Dates: start: 20070219, end: 20070223
  2. METFORMIN HCL [Concomitant]
  3. ASPIRIN [Concomitant]
  4. DOXYCYCLINE [Concomitant]
  5. GUAIFENESIN [Concomitant]
  6. POTASSIUM (POTASSIUM) [Concomitant]

REACTIONS (10)
  - ATELECTASIS [None]
  - HYPOTENSION [None]
  - HYPOXIA [None]
  - PLEURAL EFFUSION [None]
  - PRODUCTIVE COUGH [None]
  - RENAL FAILURE [None]
  - SEPSIS [None]
  - SPUTUM DISCOLOURED [None]
  - SPUTUM PURULENT [None]
  - WHITE BLOOD CELL COUNT DECREASED [None]
